FAERS Safety Report 4627174-1 (Version None)
Quarter: 2005Q1

REPORT INFORMATION
  Report Type: 
  Country: None (occurrence: None)
  Receive Date: 20050330
  Receipt Date: 20050314
  Transmission Date: 20050727
  Serious: Yes (Other)
  Sender: FDA-Public Use
  Company Number: 2005-UK-00443UK

PATIENT
  Age: 84 Year
  Sex: Male

DRUGS (7)
  1. DIPYRIDAMOLE [Suspect]
     Indication: MYOCARDIAL INFARCTION
     Dosage: 100MG QDS PO
     Route: 048
     Dates: start: 20050212
  2. CLOPIDOGREL BISULFATE [Suspect]
     Indication: MYOCARDIAL INFARCTION
     Dosage: 75 MG (, ONCE DAILY) PO
     Route: 048
     Dates: start: 20050212
  3. ASPIRIN [Suspect]
     Indication: MYOCARDIAL INFARCTION
     Dosage: 75 MG (, ONCE DAILY) PO
     Route: 048
     Dates: start: 20050212
  4. PREDNISOLONE (NR) [Concomitant]
  5. ATENOLOL (ATENOLOL) (NR) [Concomitant]
  6. SIMVASTATIN (NR) [Concomitant]
  7. RANITIDINE (RANITIDINE) (NR) [Concomitant]

REACTIONS (1)
  - DUODENAL ULCER HAEMORRHAGE [None]
